FAERS Safety Report 7708324-7 (Version None)
Quarter: 2011Q3

REPORT INFORMATION
  Report Type: 
  Country: None (occurrence: None)
  Receive Date: 20110825
  Receipt Date: 20110819
  Transmission Date: 20111222
  Serious: No
  Sender: FDA-Public Use
  Company Number: US-BIOGENIDEC-2011BI031843

PATIENT
  Age: 43 Year
  Sex: Female

DRUGS (2)
  1. AVONEX [Suspect]
     Indication: MULTIPLE SCLEROSIS
     Route: 030
     Dates: start: 20101011
  2. LEVOTHYROXINE SODIUM [Concomitant]
     Indication: THYROIDECTOMY
     Dates: start: 20090101

REACTIONS (1)
  - BLOOD THYROID STIMULATING HORMONE INCREASED [None]
